FAERS Safety Report 4886235-2 (Version None)
Quarter: 2006Q1

REPORT INFORMATION
  Report Type: 
  Country: None (occurrence: None)
  Receive Date: 20060120
  Receipt Date: 20060114
  Transmission Date: 20060701
  Serious: Yes (Hospitalization)
  Sender: FDA-Public Use
  Company Number: PHBS2006BR00958

PATIENT
  Sex: Female

DRUGS (1)
  1. METHERGINE [Suspect]
     Dosage: 0.125 MG, Q6H
     Route: 048
     Dates: start: 20060105, end: 20060115

REACTIONS (2)
  - DRUG INEFFECTIVE [None]
  - UTERINE DILATION AND CURETTAGE [None]
